FAERS Safety Report 7588668-2 (Version None)
Quarter: 2011Q3

REPORT INFORMATION
  Report Type: 
  Country: None (occurrence: None)
  Receive Date: 20110705
  Receipt Date: 20110705
  Transmission Date: 20111222
  Serious: Yes (Life-Threatening)
  Sender: FDA-Public Use
  Company Number: None

PATIENT
  Sex: Female
  Weight: 60.327 kg

DRUGS (1)
  1. OMNIPAQUE 350 [Suspect]
     Indication: COMPUTERISED TOMOGRAM HEAD
     Dosage: 100ML
     Route: 048

REACTIONS (3)
  - CHEST DISCOMFORT [None]
  - CONTRAST MEDIA REACTION [None]
  - RESPIRATORY DISTRESS [None]
